FAERS Safety Report 14189653 (Version 1)
Quarter: 2017Q4

REPORT INFORMATION
  Report Type: Spontaneous
  Country: IT (occurrence: IT)
  Receive Date: 20171115
  Receipt Date: 20171115
  Transmission Date: 20180321
  Serious: Yes (Hospitalization, Other)
  Sender: FDA-Public Use
  Company Number: IT-CIPLA LTD.-2017IT20036

PATIENT

DRUGS (15)
  1. OXALIPLATIN. [Suspect]
     Active Substance: OXALIPLATIN
     Indication: NON-HODGKIN^S LYMPHOMA
     Dosage: 2 CYCLES, UNK (R-DHAOX)
     Route: 065
     Dates: start: 201603
  2. CYTARABINE. [Suspect]
     Active Substance: CYTARABINE
     Dosage: UNK (FEAM REGIMEN)
     Route: 065
     Dates: start: 20160922
  3. FOTEMUSTINE [Suspect]
     Active Substance: FOTEMUSTINE
     Indication: NON-HODGKIN^S LYMPHOMA
     Dosage: UNK (FEAM REGIMEN)
     Route: 065
     Dates: start: 20160922
  4. MELPHALAN. [Suspect]
     Active Substance: MELPHALAN
     Indication: NON-HODGKIN^S LYMPHOMA
     Dosage: 4 CYCLES, UNK (FEAM REGIMEN)
     Route: 065
     Dates: start: 20160922
  5. VANCOMYCIN [Concomitant]
     Active Substance: VANCOMYCIN
     Indication: SEPTIC SHOCK
     Dosage: UNK
     Route: 065
     Dates: start: 201610
  6. CYTARABINE. [Suspect]
     Active Substance: CYTARABINE
     Indication: NON-HODGKIN^S LYMPHOMA
     Dosage: 2 CYCLES, HIGH DOSE, UNK (R-DHAOX)
     Route: 065
     Dates: start: 201603
  7. OXALIPLATIN. [Suspect]
     Active Substance: OXALIPLATIN
     Dosage: UNK
     Route: 065
  8. DEXAMETHASONE. [Suspect]
     Active Substance: DEXAMETHASONE
     Indication: NON-HODGKIN^S LYMPHOMA
     Dosage: 2 CYCLES, UNK (R-DHAOX)
     Route: 065
     Dates: start: 201603
  9. RITUXIMAB. [Suspect]
     Active Substance: RITUXIMAB
     Indication: NON-HODGKIN^S LYMPHOMA
     Dosage: 2 CYCLES, UNK (R-DHAOX)
     Route: 065
     Dates: start: 201603
  10. ETOPOSIDE. [Suspect]
     Active Substance: ETOPOSIDE
     Indication: NON-HODGKIN^S LYMPHOMA
     Dosage: UNK (FEAM REGIMEN)
     Route: 065
     Dates: start: 20160922
  11. PIPERACILLIN/TAZOBACTAM [Concomitant]
     Active Substance: PIPERACILLIN SODIUM\TAZOBACTAM SODIUM
     Dosage: UNK
     Route: 065
     Dates: start: 2016
  12. VANCOMYCIN [Concomitant]
     Active Substance: VANCOMYCIN
     Dosage: UNK
     Route: 065
     Dates: start: 2016
  13. ACICLOVIR [Concomitant]
     Active Substance: ACYCLOVIR
     Indication: SEPTIC SHOCK
     Dosage: UNK
     Route: 065
     Dates: start: 201610
  14. RITUXIMAB. [Suspect]
     Active Substance: RITUXIMAB
     Dosage: 4 CYCLES, UNK
     Route: 065
     Dates: start: 2016
  15. BENDAMUSTINE [Suspect]
     Active Substance: BENDAMUSTINE
     Indication: NON-HODGKIN^S LYMPHOMA
     Dosage: 4 CYCLES, UNK
     Route: 065
     Dates: start: 2016

REACTIONS (6)
  - Stomatitis [Recovering/Resolving]
  - Cytomegalovirus infection [Recovering/Resolving]
  - Septic shock [Recovering/Resolving]
  - Streptococcal infection [Recovering/Resolving]
  - Disseminated intravascular coagulation [Recovering/Resolving]
  - Respiratory failure [Recovering/Resolving]

NARRATIVE: CASE EVENT DATE: 2016
